FAERS Safety Report 5190138-6 (Version None)
Quarter: 2006Q4

REPORT INFORMATION
  Report Type: 
  Country: None (occurrence: None)
  Receive Date: 20061222
  Receipt Date: 20061213
  Transmission Date: 20070319
  Serious: Yes (Other)
  Sender: FDA-Public Use
  Company Number: NL-JNJFOC-20061204589

PATIENT
  Sex: Female
  Weight: 70 kg

DRUGS (3)
  1. CONCERTA [Suspect]
     Indication: MOOD SWINGS
     Route: 065
     Dates: start: 20060324
  2. EFFEXOR XR [Concomitant]
     Dates: start: 20050701
  3. MICROGYNON [Concomitant]
     Route: 065
     Dates: start: 20050701

REACTIONS (1)
  - CEREBROVASCULAR ACCIDENT [None]
